FAERS Safety Report 4393461-8 (Version None)
Quarter: 2004Q3

REPORT INFORMATION
  Report Type: 
  Country: None (occurrence: None)
  Receive Date: 20040709
  Receipt Date: 20040622
  Transmission Date: 20050211
  Serious: Yes (Death)
  Sender: FDA-Public Use
  Company Number: PHBS2004JP08304

PATIENT
  Age: 66 Year
  Sex: Male

DRUGS (5)
  1. VOLTAREN [Suspect]
     Indication: POST PROCEDURAL PAIN
     Dosage: 1 DF/DAY
     Route: 048
     Dates: start: 20040620, end: 20040620
  2. ROHYPNOL [Concomitant]
     Dosage: 1 DF/DAY
     Route: 048
  3. BAYASPIRIN [Concomitant]
     Dosage: 1 DF/DAY
     Route: 048
  4. KALIMATE [Concomitant]
     Dosage: 5 G/DAY
     Route: 048
  5. NIPOLAZIN [Concomitant]
     Dosage: 6 MG/DAY
     Route: 048

REACTIONS (5)
  - ACIDOSIS [None]
  - CONVULSION [None]
  - RASH [None]
  - RESPIRATORY ARREST [None]
  - REYE'S SYNDROME [None]
